FAERS Safety Report 6921098-2 (Version None)
Quarter: 2010Q3

REPORT INFORMATION
  Report Type: 
  Country: None (occurrence: None)
  Receive Date: 20100812
  Receipt Date: 20100804
  Transmission Date: 20110219
  Serious: Yes (Death)
  Sender: FDA-Public Use
  Company Number: JP-BAXTER-2010BH021083

PATIENT
  Age: 68 Year
  Sex: Male

DRUGS (5)
  1. CYCLOPHOSPHAMIDE [Suspect]
     Indication: MUSCLE HAEMORRHAGE
     Route: 065
  2. CYCLOPHOSPHAMIDE [Suspect]
     Indication: SUBCUTANEOUS HAEMATOMA
     Route: 065
  3. PREDONINE [Suspect]
     Indication: MUSCLE HAEMORRHAGE
     Route: 065
  4. PREDONINE [Suspect]
     Indication: SUBCUTANEOUS HAEMATOMA
     Route: 065
  5. OCTOCOG ALFA [Concomitant]
     Indication: MUSCLE HAEMORRHAGE
     Dosage: DOSE UNIT:UNITS PER KILOGRAM
     Route: 065

REACTIONS (1)
  - BRONCHOPULMONARY ASPERGILLOSIS [None]
